FAERS Safety Report 7934992-0 (Version None)
Quarter: 2011Q4

REPORT INFORMATION
  Report Type: 
  Country: None (occurrence: None)
  Receive Date: 20111122
  Receipt Date: 20111111
  Transmission Date: 20120403
  Serious: Yes (Death)
  Sender: FDA-Public Use
  Company Number: JP-ALLERGAN-1115041US

PATIENT
  Age: 75 Year
  Sex: Male

DRUGS (7)
  1. DIOVAN [Concomitant]
  2. COSOPT [Concomitant]
     Dosage: UNK
     Dates: start: 20101209, end: 20110118
  3. ACTOS [Concomitant]
  4. LUMIGAN [Suspect]
     Indication: OPEN ANGLE GLAUCOMA
     Dosage: 1 GTT, QD
     Route: 047
     Dates: start: 20100113, end: 20110118
  5. ADALAT [Concomitant]
  6. TIMOPTOL [Concomitant]
     Dosage: UNK
     Dates: start: 20070326, end: 20110118
  7. BASEN [Concomitant]

REACTIONS (1)
  - CEREBRAL HAEMORRHAGE [None]
